FAERS Safety Report 9826147 (Version 1)
Quarter: 2014Q1

REPORT INFORMATION
  Report Type: Spontaneous
  Country: AU (occurrence: None)
  Receive Date: 20140115
  Receipt Date: 20140115
  Transmission Date: 20141002
  Serious: Yes (Other)
  Sender: FDA-Public Use
  Company Number: 2014P000089

PATIENT
  Sex: Female

DRUGS (2)
  1. GABAPENTIN (GABAPENTIN) [Suspect]
     Dates: start: 20131014
  2. RANITIDINE (RANITIDINE) [Suspect]

REACTIONS (2)
  - Suicidal ideation [None]
  - Urticaria [None]
